FAERS Safety Report 12475168 (Version 3)
Quarter: 2016Q3

REPORT INFORMATION
  Report Type: Spontaneous
  Country: US (occurrence: US)
  Receive Date: 20160617
  Receipt Date: 20160817
  Transmission Date: 20161109
  Serious: No
  Sender: FDA-Public Use
  Company Number: US-PFIZER INC-2016267834

PATIENT
  Age: 66 Year
  Sex: Male
  Weight: 134 kg

DRUGS (15)
  1. ATORVASTATIN [Concomitant]
     Active Substance: ATORVASTATIN
     Dosage: UNK
     Dates: start: 2015
  2. ALLOPURINOL. [Concomitant]
     Active Substance: ALLOPURINOL
     Indication: GOUT
     Dosage: 100 MG, 2X/DAY; ONE IN THE MORNING AND ONE IN THE EVENING BY MOUTH
     Route: 048
     Dates: start: 2008
  3. ASPIRIN. [Concomitant]
     Active Substance: ASPIRIN
     Indication: BLOOD DISORDER
     Dosage: 325 MG, 1X/DAY BY MOUTH
     Route: 048
     Dates: start: 2010
  4. TERAZOSIN [Concomitant]
     Active Substance: TERAZOSIN\TERAZOSIN HYDROCHLORIDE
     Dosage: 1 MG, 1X/DAY BY MOUTH
     Route: 048
     Dates: start: 2009
  5. GLIMEPIRIDE. [Concomitant]
     Active Substance: GLIMEPIRIDE
     Indication: BLOOD GLUCOSE INCREASED
     Dosage: 4 MG, 2X/DAY; 4MG TABLET ONE IN THE MORNING AND ONE IN THE EVENING BY MOUTH
     Route: 048
     Dates: start: 2013
  6. CALCIUM D [Concomitant]
     Active Substance: CALCIUM\VITAMIN D
     Indication: BONE DISORDER
     Dosage: 1 DF, 2X/DAY; ONE PILL IN THE MORNING AND ONE PILL IN AFTERNOON BY MOUTH
     Route: 048
     Dates: start: 2001
  7. SIROLIMUS. [Suspect]
     Active Substance: SIROLIMUS
     Dosage: 1 MG, ALTERNATE DAY PILL BY MOUTH
     Route: 048
  8. METOPROLOL. [Concomitant]
     Active Substance: METOPROLOL
     Indication: HYPERTENSION
     Dosage: 50 MG, 2X/DAY; 50MG PILL ONE IN MORNING AND ONE IN AFTERNOON BY MOUTH
     Route: 048
     Dates: start: 2005
  9. NOVOLIN R [Concomitant]
     Active Substance: INSULIN HUMAN
     Indication: BLOOD GLUCOSE INCREASED
     Dosage: 3X/DAY; 55 UNITS IN THE MORNING, 55 UNITS IN AFTERNOON AND 60 UNITS AT NIGHT INJECTION
     Dates: start: 2013
  10. LANTUS [Concomitant]
     Active Substance: INSULIN GLARGINE
     Indication: BLOOD GLUCOSE INCREASED
     Dosage: 2X/DAY; 60 UNITS IN MORNING AND 60UNITS AT NIGHT INJECTION
     Dates: start: 2005
  11. SIROLIMUS. [Suspect]
     Active Substance: SIROLIMUS
     Indication: LIVER TRANSPLANT REJECTION
     Dosage: 1 MG, DAILY PILL BY MOUTH
     Route: 048
     Dates: start: 2016
  12. LEVOTHYROXINE. [Concomitant]
     Active Substance: LEVOTHYROXINE
     Dosage: 150 UG, DAILY; 150MCG ONCE DAILY PILL BY MOUTH
     Route: 048
     Dates: start: 2006
  13. FUROSEMIDE. [Concomitant]
     Active Substance: FUROSEMIDE
     Indication: FLUID RETENTION
     Dosage: 20 MG, DAILY BY MOUTH
     Route: 048
     Dates: start: 2014
  14. VITAMIN E [Concomitant]
     Active Substance: .ALPHA.-TOCOPHEROL
     Indication: CARDIAC DISORDER
     Dosage: 400 IU, 2X/DAY BY MOUTH
     Route: 048
     Dates: start: 2010
  15. ATORVASTATIN [Concomitant]
     Active Substance: ATORVASTATIN
     Indication: BLOOD CHOLESTEROL
     Dosage: 40 MG, 1X/DAY BY MOUTH
     Route: 048
     Dates: start: 2014

REACTIONS (3)
  - Pollakiuria [Not Recovered/Not Resolved]
  - Intentional product misuse [Recovered/Resolved]
  - Product use issue [Not Recovered/Not Resolved]

NARRATIVE: CASE EVENT DATE: 201605
